FAERS Safety Report 6399959-5 (Version None)
Quarter: 2009Q4

REPORT INFORMATION
  Report Type: 
  Country: None (occurrence: None)
  Receive Date: 20091014
  Receipt Date: 20091012
  Transmission Date: 20100525
  Serious: Yes (Hospitalization)
  Sender: FDA-Public Use
  Company Number: FR-WYE-G04601609

PATIENT
  Sex: Male
  Weight: 16.5 kg

DRUGS (3)
  1. ADVIL [Suspect]
     Indication: PYREXIA
     Route: 048
     Dates: start: 20090903, end: 20090909
  2. CELESTENE [Interacting]
     Route: 048
     Dates: start: 20090907, end: 20090908
  3. ASPEGIC 1000 [Interacting]
     Indication: PYREXIA
     Route: 048
     Dates: start: 20090903, end: 20090908

REACTIONS (5)
  - DRUG ADMINISTRATION ERROR [None]
  - DRUG INEFFECTIVE [None]
  - DRUG INTERACTION [None]
  - HEADACHE [None]
  - LYMPHADENITIS [None]
